FAERS Safety Report 13880396 (Version 1)
Quarter: 2017Q3

REPORT INFORMATION
  Report Type: Spontaneous
  Country: US (occurrence: US)
  Receive Date: 20170818
  Receipt Date: 20170818
  Transmission Date: 20171127
  Serious: No
  Sender: FDA-Public Use
  Company Number: US-ASTELLAS-2017US014764

PATIENT
  Sex: Male

DRUGS (6)
  1. AMBISOME [Suspect]
     Active Substance: AMPHOTERICIN B
     Indication: MYCOPLASMA TEST POSITIVE
     Route: 065
  2. AMBISOME [Suspect]
     Active Substance: AMPHOTERICIN B
     Indication: INFLUENZA
  3. AMBISOME [Suspect]
     Active Substance: AMPHOTERICIN B
     Indication: ACUTE RESPIRATORY FAILURE
  4. AMBISOME [Suspect]
     Active Substance: AMPHOTERICIN B
     Indication: HYPOXIA
  5. AMBISOME [Suspect]
     Active Substance: AMPHOTERICIN B
     Indication: RESPIRATORY DISORDER
  6. AMBISOME [Suspect]
     Active Substance: AMPHOTERICIN B
     Indication: TUBERCULOSIS

REACTIONS (1)
  - Off label use [Unknown]
